FAERS Safety Report 25669637 (Version 1)
Quarter: 2025Q3

REPORT INFORMATION
  Report Type: Spontaneous
  Country: EU (occurrence: EU)
  Receive Date: 20250812
  Receipt Date: 20250812
  Transmission Date: 20251021
  Serious: Yes (Other)
  Sender: SANDOZ
  Company Number: EU-NOVPHSZ-PHHY2019DE123102

PATIENT
  Age: 44 Year
  Sex: Male

DRUGS (20)
  1. ACYCLOVIR [Suspect]
     Active Substance: ACYCLOVIR
     Indication: Allogenic stem cell transplantation
     Dosage: 400 MG, BID
     Route: 065
  2. ACYCLOVIR [Suspect]
     Active Substance: ACYCLOVIR
     Indication: Immunosuppressant drug therapy
     Dosage: 800 MG, QD
     Route: 065
  3. MYCOPHENOLIC ACID [Suspect]
     Active Substance: MYCOPHENOLIC ACID
     Indication: Allogenic stem cell transplantation
     Dosage: 720 MG, QD
     Route: 065
  4. MYCOPHENOLIC ACID [Suspect]
     Active Substance: MYCOPHENOLIC ACID
     Indication: Immunosuppressant drug therapy
  5. PREDNISOLONE [Suspect]
     Active Substance: PREDNISOLONE
     Indication: Immunosuppressant drug therapy
     Route: 065
  6. PREDNISOLONE [Suspect]
     Active Substance: PREDNISOLONE
     Indication: Allogenic stem cell transplantation
     Route: 065
  7. VALGANCICLOVIR [Suspect]
     Active Substance: VALGANCICLOVIR
     Indication: Cytomegalovirus viraemia
     Dosage: 1800 MG, QD (1800 MILLIGRAM DAILY)
     Route: 065
  8. VALGANCICLOVIR [Suspect]
     Active Substance: VALGANCICLOVIR
     Dosage: 450 MG (DAILY DOSE: 450 MG MILLGRAM(S) EVERY 2 DAYS)
     Route: 065
  9. VALGANCICLOVIR [Suspect]
     Active Substance: VALGANCICLOVIR
     Indication: Antiviral prophylaxis
     Dosage: 900 MG, QD
     Route: 065
  10. VALGANCICLOVIR [Suspect]
     Active Substance: VALGANCICLOVIR
     Route: 065
  11. ACYCLOVIR [Concomitant]
     Active Substance: ACYCLOVIR
     Indication: Immunosuppressant drug therapy
     Dosage: 400 MG, BID
     Route: 065
  12. MYCOPHENOLIC ACID [Concomitant]
     Active Substance: MYCOPHENOLIC ACID
     Indication: Immunosuppressant drug therapy
     Dosage: 360 MG, BID
     Route: 065
  13. PREDNISOLONE [Concomitant]
     Active Substance: PREDNISOLONE
     Route: 065
  14. PREDNISOLONE [Concomitant]
     Active Substance: PREDNISOLONE
     Route: 065
  15. PREDNISOLONE [Concomitant]
     Active Substance: PREDNISOLONE
     Indication: Immunosuppressant drug therapy
     Route: 065
  16. CYCLOSPORINE [Interacting]
     Active Substance: CYCLOSPORINE
     Indication: Allogenic stem cell transplantation
     Route: 048
  17. CYCLOSPORINE [Interacting]
     Active Substance: CYCLOSPORINE
     Indication: Immunosuppressant drug therapy
  18. CYCLOSPORINE [Interacting]
     Active Substance: CYCLOSPORINE
     Indication: Immunosuppressant drug therapy
  19. LETERMOVIR [Interacting]
     Active Substance: LETERMOVIR
     Indication: Antiviral prophylaxis
     Dosage: 240 MG, QD (DAILY DOSE: 240 MG MILLGRAM (S) EVERY DAYS)
     Route: 048
  20. LETERMOVIR [Interacting]
     Active Substance: LETERMOVIR
     Indication: Antiviral prophylaxis
     Dosage: 480 MG, QD
     Route: 048

REACTIONS (8)
  - Neutropenia [Recovered/Resolved]
  - Pathogen resistance [Unknown]
  - Drug interaction [Unknown]
  - Graft versus host disease in gastrointestinal tract [Unknown]
  - Cytomegalovirus infection [Recovering/Resolving]
  - Drug interaction [Unknown]
  - Mucosal inflammation [Unknown]
  - Product use in unapproved indication [Unknown]
